FAERS Safety Report 19821906 (Version 1)
Quarter: 2021Q3

REPORT INFORMATION
  Report Type: Spontaneous
  Country: US (occurrence: US)
  Receive Date: 20210913
  Receipt Date: 20210913
  Transmission Date: 20211014
  Serious: No
  Sender: FDA-Public Use
  Company Number: None

PATIENT
  Age: 69 Year
  Sex: Male
  Weight: 83.01 kg

DRUGS (1)
  1. REGEN?COV [Suspect]
     Active Substance: CASIRIVIMAB\IMDEVIMAB
     Indication: COVID-19
     Dates: start: 20210911, end: 20210911

REACTIONS (4)
  - Hyperhidrosis [None]
  - Infusion related reaction [None]
  - Nausea [None]
  - Shock [None]

NARRATIVE: CASE EVENT DATE: 20210911
